FAERS Safety Report 13560957 (Version 2)
Quarter: 2021Q1

REPORT INFORMATION
  Report Type: Report from Study
  Country: AU (occurrence: AU)
  Receive Date: 20170518
  Receipt Date: 20210323
  Transmission Date: 20210419
  Serious: Yes (Hospitalization, Other)
  Sender: FDA-Public Use
  Company Number: AU-SUN PHARMACEUTICAL INDUSTRIES LTD-2017R1-140970

PATIENT
  Age: 19 Year
  Sex: Female

DRUGS (3)
  1. DESVENLAFAXINE. [Suspect]
     Active Substance: DESVENLAFAXINE
     Indication: PRODUCT USED FOR UNKNOWN INDICATION
     Dosage: 3500 MG
     Route: 048
  2. ALCOHOL. [Suspect]
     Active Substance: ALCOHOL
     Indication: PRODUCT USED FOR UNKNOWN INDICATION
     Dosage: UNK
     Route: 048
  3. VALPROIC ACID. [Suspect]
     Active Substance: VALPROIC ACID
     Indication: PRODUCT USED FOR UNKNOWN INDICATION
     Dosage: 39000 MG
     Route: 048

REACTIONS (2)
  - Serotonin syndrome [Unknown]
  - Overdose [Unknown]
